FAERS Safety Report 6550329-6 (Version None)
Quarter: 2010Q1

REPORT INFORMATION
  Report Type: 
  Country: None (occurrence: None)
  Receive Date: 20100125
  Receipt Date: 20100115
  Transmission Date: 20100710
  Serious: No
  Sender: FDA-Public Use
  Company Number: US-B.I. PHARMACEUTICALS,INC./RIDGEFIELD-2009-BP-14722BP

PATIENT
  Sex: Female

DRUGS (5)
  1. ZANTAC 150 [Suspect]
     Indication: DYSPEPSIA
     Dosage: 150 MG
     Route: 048
     Dates: start: 20091221, end: 20091221
  2. ZANTAC 150 [Suspect]
     Indication: GASTROOESOPHAGEAL REFLUX DISEASE
     Dosage: 300 MG
     Route: 048
     Dates: start: 20091130, end: 20091130
  3. ZANTAC 150 [Suspect]
     Indication: ABDOMINAL PAIN UPPER
     Dosage: 300 MG
     Route: 048
     Dates: end: 20100114
  4. ZANTAC [Suspect]
     Indication: GASTROOESOPHAGEAL REFLUX DISEASE
     Dosage: 300 MG
     Route: 048
     Dates: start: 20091224
  5. SYNTHROID [Concomitant]
     Indication: HYPOTHYROIDISM

REACTIONS (7)
  - ANXIETY [None]
  - CONTUSION [None]
  - DRY SKIN [None]
  - DYSPHONIA [None]
  - EXCORIATION [None]
  - PALPITATIONS [None]
  - SKIN DISCOLOURATION [None]
